FAERS Safety Report 9744844 (Version 2)
Quarter: 2014Q1

REPORT INFORMATION
  Report Type: Spontaneous
  Country: DE (occurrence: DE)
  Receive Date: 20131211
  Receipt Date: 20140228
  Transmission Date: 20141002
  Serious: Yes (Other)
  Sender: FDA-Public Use
  Company Number: DE-AMGEN-DEUSP2013085478

PATIENT
  Age: 75 Year
  Sex: Female
  Weight: 64 kg

DRUGS (4)
  1. PROLIA [Suspect]
     Indication: OSTEOPOROSIS POSTMENOPAUSAL
     Dosage: 60 MG, Q6MO
     Route: 065
     Dates: start: 20120613, end: 20131205
  2. CORTISONE [Concomitant]
     Indication: RHEUMATIC DISORDER
     Dosage: 0.5 MG, 1X
     Dates: start: 2007
  3. BELOC                              /00030002/ [Concomitant]
     Indication: HYPERTENSION
     Dosage: 95 MG, 2X
     Dates: start: 2004
  4. DEKRISTOL [Concomitant]
     Indication: OSTEOPOROSIS
     Dosage: 20000 UNK, QMO
     Dates: start: 2005

REACTIONS (1)
  - Atypical femur fracture [Not Recovered/Not Resolved]
